FAERS Safety Report 11823368 (Version 1)
Quarter: 2015Q4

REPORT INFORMATION
  Report Type: Report from Study
  Country: ES (occurrence: ES)
  Receive Date: 20151210
  Receipt Date: 20151210
  Transmission Date: 20160305
  Serious: Yes (Hospitalization, Disabling)
  Sender: FDA-Public Use
  Company Number: ES-ABBVIE-15P-144-1513079-00

PATIENT
  Sex: Female

DRUGS (1)
  1. DUODOPA [Suspect]
     Active Substance: CARBIDOPA\LEVODOPA
     Indication: PARKINSON^S DISEASE
     Route: 050

REACTIONS (5)
  - Epilepsy [Unknown]
  - Gait disturbance [Unknown]
  - Unintentional medical device removal [Unknown]
  - Vertigo [Unknown]
  - Disorientation [Unknown]

NARRATIVE: CASE EVENT DATE: 2015
